FAERS Safety Report 7732122-1 (Version None)
Quarter: 2011Q3

REPORT INFORMATION
  Report Type: 
  Country: None (occurrence: None)
  Receive Date: 20110906
  Receipt Date: 20110810
  Transmission Date: 20111222
  Serious: No
  Sender: FDA-Public Use
  Company Number: US-AMGEN-USASP2011041098

PATIENT
  Sex: Female

DRUGS (2)
  1. PROLIA [Suspect]
     Indication: PRODUCT USED FOR UNKNOWN INDICATION
     Dosage: UNK
     Dates: start: 20110218
  2. SYNTHROID [Concomitant]

REACTIONS (4)
  - PSORIASIS [None]
  - BONE PAIN [None]
  - RASH [None]
  - ROSACEA [None]
